FAERS Safety Report 4293164-4 (Version None)
Quarter: 2004Q1

REPORT INFORMATION
  Report Type: 
  Country: None (occurrence: None)
  Receive Date: 20040210
  Receipt Date: 20040128
  Transmission Date: 20041129
  Serious: Yes (Death, Hospitalization)
  Sender: FDA-Public Use
  Company Number: JP-JNJFOC-20040200967

PATIENT
  Age: 72 Year
  Sex: Male

DRUGS (9)
  1. DUROTEP (FENTANYL) [Suspect]
     Indication: CANCER PAIN
     Dosage: 2.5 + 5 MG, 1 IN 3 DAY, TRANSDERMAL
     Dates: start: 20031117, end: 20031120
  2. DUROTEP (FENTANYL) [Suspect]
     Indication: CANCER PAIN
     Dosage: 2.5 + 5 MG, 1 IN 3 DAY, TRANSDERMAL
     Dates: start: 20031120, end: 20031127
  3. METOCLOPRAMIDE [Concomitant]
  4. FAMOTIDINE (FAMTIDINE) [Concomitant]
  5. OTHER CARDIOVASCULAR AGENTS (CARDIOVASCULAR SYSTEM DRUGS) [Concomitant]
  6. PREDNISOLONE SODIUM SUCCINATE INJ [Concomitant]
  7. CEFPIROME SULFATE        (CEFPIROME SULFATE) [Concomitant]
  8. MORPHINE HYDROCHLORIDE     (MORPHINE HYDROCHLORIDE) [Concomitant]
  9. ANTIBIOTIC PREPARATIONS ACTING MAINLY ON GRAM-POSITIVE (ANTIBIOTICS) [Concomitant]

REACTIONS (6)
  - HYDROCEPHALUS [None]
  - LUNG NEOPLASM MALIGNANT [None]
  - LYMPHANGIOSIS CARCINOMATOSA [None]
  - MALIGNANT NEOPLASM PROGRESSION [None]
  - MENINGEAL DISORDER [None]
  - RESPIRATORY FAILURE [None]
